FAERS Safety Report 18445666 (Version 1)
Quarter: 2020Q4

REPORT INFORMATION
  Report Type: Spontaneous
  Country: FR (occurrence: FR)
  Receive Date: 20201030
  Receipt Date: 20201030
  Transmission Date: 20210114
  Serious: Yes (Death, Other)
  Sender: FDA-Public Use
  Company Number: FR-PERRIGO-20FR015029

PATIENT

DRUGS (46)
  1. NICOTINE. [Suspect]
     Active Substance: NICOTINE
     Dosage: 14 MG/24H
     Route: 065
  2. NICOTINE. [Suspect]
     Active Substance: NICOTINE
     Dosage: 21 MG/24H
     Route: 065
  3. NICOTINE. [Suspect]
     Active Substance: NICOTINE
     Dosage: UNK
     Route: 065
  4. NICOTINE. [Suspect]
     Active Substance: NICOTINE
     Dosage: 1,5 MG
     Route: 065
  5. NICOTINE. [Suspect]
     Active Substance: NICOTINE
     Dosage: 1,5 MG
     Route: 065
  6. NIQUITIN [Suspect]
     Active Substance: NICOTINE
     Dosage: UNK
     Route: 065
  7. NICOTINELL [Suspect]
     Active Substance: NICOTINE
     Dosage: UNK
     Route: 065
  8. NICOTINELL [Suspect]
     Active Substance: NICOTINE
     Dosage: UNK
     Route: 065
  9. NICOTINELL [Suspect]
     Active Substance: NICOTINE
     Indication: SMOKING CESSATION THERAPY
     Dosage: UNK
     Route: 065
  10. NICORETTE [Suspect]
     Active Substance: NICOTINE
     Indication: SMOKING CESSATION THERAPY
     Dosage: UNK
     Route: 065
  11. NICORETTE MICROTAB [Suspect]
     Active Substance: NICOTINE
     Indication: SMOKING CESSATION THERAPY
     Dosage: UNK
     Route: 065
  12. NICOTINELL [Suspect]
     Active Substance: NICOTINE
     Indication: SMOKING CESSATION THERAPY
     Dosage: 21 MG/24H
     Route: 065
  13. NICOTINELL [Suspect]
     Active Substance: NICOTINE
     Dosage: 7 MG/24H
     Route: 065
  14. NICOTINE. [Suspect]
     Active Substance: NICOTINE
     Indication: SMOKING CESSATION THERAPY
     Dosage: UNK
     Route: 065
  15. NIQUITIN [Suspect]
     Active Substance: NICOTINE
     Indication: PRODUCT USED FOR UNKNOWN INDICATION
     Dosage: UNK
     Route: 065
  16. NIQUITIN [Suspect]
     Active Substance: NICOTINE
     Dosage: UNK
     Route: 065
  17. NICOTINELL [Suspect]
     Active Substance: NICOTINE
     Indication: SMOKING CESSATION THERAPY
     Dosage: UNK
     Route: 065
  18. NICORETTE [Suspect]
     Active Substance: NICOTINE
     Indication: SMOKING CESSATION THERAPY
     Dosage: UNK
     Route: 065
  19. NICORETTE [Suspect]
     Active Substance: NICOTINE
     Indication: SMOKING CESSATION THERAPY
     Dosage: UNK
     Route: 065
  20. NICORETTE [Suspect]
     Active Substance: NICOTINE
     Indication: SMOKING CESSATION THERAPY
     Dosage: 25 MG/16H
     Route: 065
  21. NICOTINE. [Suspect]
     Active Substance: NICOTINE
     Indication: SMOKING CESSATION THERAPY
     Dosage: UNK
     Route: 065
  22. NICORETTE [Suspect]
     Active Substance: NICOTINE
     Indication: SMOKING CESSATION THERAPY
     Dosage: UNK
     Route: 065
  23. NICORETTE [Suspect]
     Active Substance: NICOTINE
     Indication: SMOKING CESSATION THERAPY
     Dosage: UNK
     Route: 065
  24. NICOTINE. [Suspect]
     Active Substance: NICOTINE
     Dosage: UNK
     Route: 065
  25. NIQUITIN [Suspect]
     Active Substance: NICOTINE
     Indication: SMOKING CESSATION THERAPY
     Dosage: 14 MG/24H
     Route: 065
  26. NICORETTE [Suspect]
     Active Substance: NICOTINE
     Indication: SMOKING CESSATION THERAPY
     Dosage: UNK
     Route: 065
  27. NICORETTE [Suspect]
     Active Substance: NICOTINE
     Indication: SMOKING CESSATION THERAPY
     Dosage: UNK
     Route: 065
  28. NICOTINE. [Suspect]
     Active Substance: NICOTINE
     Indication: SMOKING CESSATION THERAPY
     Dosage: 7 MG/24H
     Route: 065
  29. NICOTINE. [Suspect]
     Active Substance: NICOTINE
     Dosage: UNK
     Route: 065
  30. NIQUITIN [Suspect]
     Active Substance: NICOTINE
     Dosage: 7 MG/24H
     Route: 065
  31. NICOTINE. [Suspect]
     Active Substance: NICOTINE
     Dosage: UNK
     Route: 065
  32. NICOTINE. [Suspect]
     Active Substance: NICOTINE
     Dosage: UNK
     Route: 065
  33. NIQUITIN [Suspect]
     Active Substance: NICOTINE
     Indication: SMOKING CESSATION THERAPY
     Dosage: UNK
     Route: 065
  34. NIQUITIN [Suspect]
     Active Substance: NICOTINE
     Dosage: UNK
     Route: 065
  35. NIQUITIN [Suspect]
     Active Substance: NICOTINE
     Indication: SMOKING CESSATION THERAPY
     Dosage: UNK
     Route: 065
  36. NICOTINELL [Suspect]
     Active Substance: NICOTINE
     Dosage: 14 MG/24H
     Route: 065
  37. NICOPATCH [Suspect]
     Active Substance: NICOTINE
     Indication: SMOKING CESSATION THERAPY
     Dosage: 14 MG/24H
     Route: 065
  38. NICOPATCH [Suspect]
     Active Substance: NICOTINE
     Dosage: 21 MG/24H
     Route: 065
  39. NICOTINE. [Suspect]
     Active Substance: NICOTINE
     Dosage: UNK
     Route: 065
  40. NIQUITIN [Suspect]
     Active Substance: NICOTINE
     Dosage: 21 MG/24H
     Route: 065
  41. NICORETTE [Suspect]
     Active Substance: NICOTINE
     Indication: SMOKING CESSATION THERAPY
     Dosage: UNK
     Route: 065
  42. NICORETTE [Suspect]
     Active Substance: NICOTINE
     Indication: SMOKING CESSATION THERAPY
     Dosage: UNK
     Route: 065
  43. NICORETTE MICROTAB [Suspect]
     Active Substance: NICOTINE
     Indication: SMOKING CESSATION THERAPY
     Dosage: UNK
     Route: 065
  44. NICOPATCH [Suspect]
     Active Substance: NICOTINE
     Dosage: 7 MG/24H
     Route: 065
  45. NICOTINELL [Suspect]
     Active Substance: NICOTINE
     Indication: SMOKING CESSATION THERAPY
     Dosage: UNK
     Route: 065
  46. NICORETTE [Suspect]
     Active Substance: NICOTINE
     Indication: SMOKING CESSATION THERAPY
     Dosage: UNK
     Route: 065

REACTIONS (1)
  - Death [Fatal]

NARRATIVE: CASE EVENT DATE: 2020
